FAERS Safety Report 14634159 (Version 1)
Quarter: 2018Q1

REPORT INFORMATION
  Report Type: Spontaneous
  Country: AU (occurrence: AU)
  Receive Date: 20180314
  Receipt Date: 20180314
  Transmission Date: 20180509
  Serious: Yes (Other)
  Sender: FDA-Public Use
  Company Number: AU-SUN PHARMACEUTICAL INDUSTRIES LTD-2018RR-166143

PATIENT
  Age: 83 Year
  Sex: Male

DRUGS (3)
  1. DOXORUBICIN LIPOSOME [Suspect]
     Active Substance: DOXORUBICIN
     Route: 065
  2. METHOTREXATE. [Suspect]
     Active Substance: METHOTREXATE
     Indication: KAPOSI^S SARCOMA CLASSICAL TYPE
     Route: 065
  3. VINBLASTINE [Suspect]
     Active Substance: VINBLASTINE
     Indication: KAPOSI^S SARCOMA CLASSICAL TYPE
     Route: 065

REACTIONS (2)
  - Disease recurrence [Recovered/Resolved]
  - Cardiotoxicity [Unknown]
